FAERS Safety Report 5042879-9 (Version None)
Quarter: 2006Q3

REPORT INFORMATION
  Report Type: 
  Country: None (occurrence: None)
  Receive Date: 20060705
  Receipt Date: 20060629
  Transmission Date: 20061208
  Serious: Yes (Disabling)
  Sender: FDA-Public Use
  Company Number: CH-GLAXOSMITHKLINE-B0429689A

PATIENT
  Age: 36 Year
  Sex: Female

DRUGS (3)
  1. LAMICTAL [Suspect]
     Dosage: 250MG PER DAY
     Route: 048
     Dates: start: 20050501
  2. LITHIUM SULPHATE [Concomitant]
     Indication: BIPOLAR I DISORDER
     Route: 065
  3. TEGRETOL [Concomitant]
     Indication: BIPOLAR I DISORDER
     Route: 065

REACTIONS (2)
  - ACNE [None]
  - ACNE CYSTIC [None]
